FAERS Safety Report 10798195 (Version 1)
Quarter: 2015Q1

REPORT INFORMATION
  Report Type: Spontaneous
  Country: US (occurrence: US)
  Receive Date: 20150216
  Receipt Date: 20150216
  Transmission Date: 20150721
  Serious: No
  Sender: FDA-Public Use
  Company Number: US-PFIZER INC-2015056862

PATIENT
  Age: 67 Year
  Sex: Male
  Weight: 127 kg

DRUGS (4)
  1. IBUPROFEN. [Suspect]
     Active Substance: IBUPROFEN
     Indication: PAIN IN EXTREMITY
     Dosage: 800 MG, UNK
     Dates: start: 201502
  2. LYRICA [Concomitant]
     Active Substance: PREGABALIN
     Dosage: UNK
     Dates: end: 201502
  3. LANTUS [Concomitant]
     Active Substance: INSULIN GLARGINE
     Indication: DIABETES MELLITUS
     Dosage: 30 UNITS, IN THE MORNING
  4. NOVA [Concomitant]
     Indication: DIABETES MELLITUS
     Dosage: 70/30 - 10-20 UNITS BEFORE MEALS

REACTIONS (1)
  - Drug effect incomplete [Unknown]

NARRATIVE: CASE EVENT DATE: 201502
